FAERS Safety Report 18406266 (Version 1)
Quarter: 2020Q4

REPORT INFORMATION
  Report Type: Spontaneous
  Country: US (occurrence: US)
  Receive Date: 20201020
  Receipt Date: 20201020
  Transmission Date: 20210114
  Serious: Yes (Other)
  Sender: FDA-Public Use
  Company Number: US-PURDUE-USA-2020-0170997

PATIENT
  Sex: Male

DRUGS (3)
  1. HYDROMORPHONE TABLETS [Suspect]
     Active Substance: HYDROMORPHONE
     Indication: PRODUCT USED FOR UNKNOWN INDICATION
     Dosage: UNK
     Route: 048
  2. OXYCONTIN [Suspect]
     Active Substance: OXYCODONE HYDROCHLORIDE
     Indication: PRODUCT USED FOR UNKNOWN INDICATION
     Dosage: UNK
     Route: 048
  3. OXYCODONE HYDROCHLORIDE (SIMILAR TO NDA 22-272) [Suspect]
     Active Substance: OXYCODONE HYDROCHLORIDE
     Indication: PRODUCT USED FOR UNKNOWN INDICATION
     Dosage: UNK
     Route: 048

REACTIONS (29)
  - Anxiety [Unknown]
  - Decreased appetite [Unknown]
  - Pain [Unknown]
  - Suicidal ideation [Unknown]
  - Fatigue [Unknown]
  - Confusional state [Unknown]
  - Panic attack [Unknown]
  - Chest pain [Unknown]
  - Delusion [Unknown]
  - Weight decreased [Unknown]
  - Hallucination [Unknown]
  - Depression [Unknown]
  - Drug dependence [Unknown]
  - Emotional distress [Unknown]
  - Judgement impaired [Unknown]
  - Headache [Unknown]
  - Overdose [Unknown]
  - Mood altered [Unknown]
  - Disturbance in attention [Unknown]
  - Somnolence [Unknown]
  - Vomiting [Unknown]
  - Amnesia [Unknown]
  - Constipation [Unknown]
  - Chills [Unknown]
  - Dizziness [Unknown]
  - Dyspnoea [Unknown]
  - Nausea [Unknown]
  - Mental disorder [Unknown]
  - Injury [Unknown]
